FAERS Safety Report 9909386 (Version 1)
Quarter: 2014Q1

REPORT INFORMATION
  Report Type: Spontaneous
  Country: US (occurrence: None)
  Receive Date: 20140214
  Receipt Date: 20140214
  Transmission Date: 20141002
  Serious: No
  Sender: FDA-Public Use
  Company Number: None

PATIENT
  Age: 36 Year
  Sex: Male

DRUGS (6)
  1. CLOZAPINE [Suspect]
     Route: 048
  2. FLUPHENAZINE [Concomitant]
  3. LITHIUM [Concomitant]
  4. POTASSIUM CHLORIDE [Concomitant]
  5. DEPAKOTE [Concomitant]
  6. OLANZAPINE [Concomitant]

REACTIONS (9)
  - Delirium [None]
  - Myoclonus [None]
  - Diarrhoea [None]
  - Pyrexia [None]
  - Lethargy [None]
  - Hypotension [None]
  - Tachycardia [None]
  - White blood cell count increased [None]
  - Toxicity to various agents [None]
